FAERS Safety Report 25769880 (Version 2)
Quarter: 2025Q3

REPORT INFORMATION
  Report Type: Report from Study
  Country: US (occurrence: US)
  Receive Date: 20250907
  Receipt Date: 20250918
  Transmission Date: 20251020
  Serious: Yes (Other)
  Sender: UCB
  Company Number: US-UCBSA-2025054544

PATIENT
  Age: 10 Year
  Sex: Male
  Weight: 49.7 kg

DRUGS (1)
  1. FINTEPLA [Suspect]
     Active Substance: FENFLURAMINE
     Indication: Product used for unknown indication
     Dates: start: 2020

REACTIONS (2)
  - Tricuspid valve incompetence [Not Recovered/Not Resolved]
  - Pulmonary valve incompetence [Not Recovered/Not Resolved]

NARRATIVE: CASE EVENT DATE: 20250824
